FAERS Safety Report 14028282 (Version 1)
Quarter: 2017Q4

REPORT INFORMATION
  Report Type: Spontaneous
  Country: US (occurrence: US)
  Receive Date: 20171001
  Receipt Date: 20171001
  Transmission Date: 20180321
  Serious: Yes (Other)
  Sender: FDA-Public Use
  Company Number: None

PATIENT
  Age: 63 Year
  Sex: Female
  Weight: 36 kg

DRUGS (18)
  1. RECLAST [Suspect]
     Active Substance: ZOLEDRONIC ACID
     Indication: OSTEOPOROSIS
     Dosage: 1 INJECTION(S); ONCE A YEAR?
     Route: 042
     Dates: start: 20170921
  2. BUPROPION. [Concomitant]
     Active Substance: BUPROPION
  3. CITALOPRAM [Concomitant]
     Active Substance: CITALOPRAM HYDROBROMIDE
  4. FLAXSEED [Concomitant]
     Active Substance: FLAX SEED
  5. RESTASIS [Concomitant]
     Active Substance: CYCLOSPORINE
  6. MULTIVITAMIN-MINERAL [Concomitant]
  7. SYNTHROID [Concomitant]
     Active Substance: LEVOTHYROXINE SODIUM
  8. CALCIUM-VITAMIND-VITAMIN K [Concomitant]
  9. DIGESTIVE ENZYMES [Concomitant]
     Active Substance: UNSPECIFIED INGREDIENT
  10. AREDS [Concomitant]
     Active Substance: MINERALS\VITAMINS
  11. TRAZODONE [Concomitant]
     Active Substance: TRAZODONE HYDROCHLORIDE
  12. ANTI-INFLAMMATORY HERBAL FORMULAS [Concomitant]
  13. MAGNESIUM [Concomitant]
     Active Substance: MAGNESIUM
  14. GABAPENTIN. [Concomitant]
     Active Substance: GABAPENTIN
  15. MELATONIN [Concomitant]
     Active Substance: MELATONIN
  16. SLEEP HERBAL FORMULAS [Concomitant]
  17. OTC EYEDROPS [Concomitant]
  18. PROBIOTICS [Concomitant]
     Active Substance: PROBIOTICS NOS

REACTIONS (6)
  - Pain in jaw [None]
  - Dry mouth [None]
  - Oropharyngeal pain [None]
  - Dysphagia [None]
  - Swollen tongue [None]
  - Uveitis [None]

NARRATIVE: CASE EVENT DATE: 20170924
